FAERS Safety Report 16747814 (Version 2)
Quarter: 2019Q3

REPORT INFORMATION
  Report Type: Spontaneous
  Country: IE (occurrence: US)
  Receive Date: 20190827
  Receipt Date: 20190830
  Transmission Date: 20191005
  Serious: Yes (Other)
  Sender: FDA-Public Use
  Company Number: PHHY2019US193224

PATIENT
  Age: 47 Year
  Sex: Female

DRUGS (4)
  1. ASPARIN [Suspect]
     Active Substance: ASPIRIN DL-LYSINE
     Indication: PRODUCT USED FOR UNKNOWN INDICATION
     Dosage: UNK
     Route: 065
  2. ESTRADIOL. [Suspect]
     Active Substance: ESTRADIOL
     Indication: PRODUCT USED FOR UNKNOWN INDICATION
     Dosage: UNK
     Route: 062
  3. TINZAPARIN [Suspect]
     Active Substance: TINZAPARIN
     Indication: PRODUCT USED FOR UNKNOWN INDICATION
     Dosage: UNK
     Route: 065
  4. PROGESTERONE. [Suspect]
     Active Substance: PROGESTERONE
     Indication: PRODUCT USED FOR UNKNOWN INDICATION
     Dosage: UNK
     Route: 067

REACTIONS (9)
  - Erythema nodosum [Recovering/Resolving]
  - Panniculitis [Recovering/Resolving]
  - Joint stiffness [Recovering/Resolving]
  - Rash [Recovering/Resolving]
  - Skin mass [Recovering/Resolving]
  - Maternal exposure during pregnancy [Unknown]
  - Tenderness [Recovering/Resolving]
  - Foetal death [Unknown]
  - Contusion [Recovering/Resolving]
